FAERS Safety Report 9015846 (Version 1)
Quarter: 2013Q1

REPORT INFORMATION
  Report Type: Spontaneous
  Country: ES (occurrence: ES)
  Receive Date: 20130116
  Receipt Date: 20130116
  Transmission Date: 20140127
  Serious: Yes (Death, Hospitalization)
  Sender: FDA-Public Use
  Company Number: PHHY2013ES003802

PATIENT
  Age: 57 Year
  Sex: Male

DRUGS (2)
  1. CICLOSPORIN [Suspect]
     Dates: start: 201202, end: 20120303
  2. DARBEPOETIN ALFA [Suspect]
     Indication: NEPHROGENIC ANAEMIA
     Dosage: 50 UG, ONCE MONTHLY
     Route: 058
     Dates: start: 20111013

REACTIONS (5)
  - Gastrointestinal haemorrhage [Fatal]
  - Rhabdomyolysis [Recovered/Resolved]
  - Nephropathy toxic [Unknown]
  - Urinary tract obstruction [Recovered/Resolved]
  - Confusional state [Unknown]
